FAERS Safety Report 23252575 (Version 1)
Quarter: 2023Q4

REPORT INFORMATION
  Report Type: Spontaneous
  Country: IT (occurrence: IT)
  Receive Date: 20231201
  Receipt Date: 20231201
  Transmission Date: 20240109
  Serious: Yes (Death, Other)
  Sender: FDA-Public Use
  Company Number: IT-Blueprint Medicines Corporation-LT-IT-2023-001941

PATIENT
  Age: 66 Year
  Sex: Male

DRUGS (2)
  1. AVAPRITINIB [Suspect]
     Active Substance: AVAPRITINIB
     Indication: Systemic mastocytosis
     Route: 065
  2. AVAPRITINIB [Suspect]
     Active Substance: AVAPRITINIB
     Indication: Chronic myelomonocytic leukaemia

REACTIONS (1)
  - Acute myeloid leukaemia [Fatal]
